FAERS Safety Report 24930358 (Version 5)
Quarter: 2025Q2

REPORT INFORMATION
  Report Type: Spontaneous
  Country: US (occurrence: US)
  Receive Date: 20250205
  Receipt Date: 20250403
  Transmission Date: 20250716
  Serious: No
  Sender: PFIZER
  Company Number: US-PFIZER INC-202500023686

PATIENT
  Age: 14 Year
  Sex: Male
  Weight: 43.2 kg

DRUGS (2)
  1. SOMATROPIN [Suspect]
     Active Substance: SOMATROPIN
     Indication: Blood growth hormone abnormal
     Dosage: 2 MG, DAILY, 6 DAYS PER WEEK
     Route: 058
  2. SOMATROPIN [Suspect]
     Active Substance: SOMATROPIN
     Indication: Short stature

REACTIONS (1)
  - Mental disorder [Unknown]
